FAERS Safety Report 7882519-4 (Version None)
Quarter: 2011Q4

REPORT INFORMATION
  Report Type: 
  Country: None (occurrence: None)
  Receive Date: 20111101
  Receipt Date: 20110615
  Transmission Date: 20120403
  Serious: No
  Sender: FDA-Public Use
  Company Number: US-AMGEN-USASP2011030717

PATIENT
  Age: 59 Year
  Sex: Female
  Weight: 73.469 kg

DRUGS (7)
  1. ENBREL [Suspect]
     Indication: PRODUCT USED FOR UNKNOWN INDICATION
     Dosage: 25 MG, 2 TIMES/WK
  2. FOLIC ACID [Concomitant]
     Dosage: 200 MUG, UNK
  3. BONIVA [Concomitant]
     Dosage: 150 MG, UNK
  4. ZITHROMAX [Concomitant]
  5. METHOTREXATE [Concomitant]
     Dosage: 2.5 MG, UNK
  6. SYNTHROID [Concomitant]
     Dosage: 25 MUG, UNK
  7. OMEPRAZOLE [Concomitant]
     Dosage: 40 MG, UNK

REACTIONS (1)
  - UPPER RESPIRATORY TRACT INFECTION [None]
